FAERS Safety Report 4711488-0 (Version None)
Quarter: 2005Q3

REPORT INFORMATION
  Report Type: 
  Country: None (occurrence: None)
  Receive Date: 20050711
  Receipt Date: 20050701
  Transmission Date: 20060218
  Serious: Yes (Hospitalization, Disabling)
  Sender: FDA-Public Use
  Company Number: HQ9798208JAN2002

PATIENT
  Sex: Male

DRUGS (2)
  1. DIMETAPP (BROMPHENIRAMINE/PHENYLPROPANOLAMINE HYDROCHLORIDE, SYRUP) [Suspect]
     Indication: NASOPHARYNGITIS
     Dosage: ORAL
     Route: 048
     Dates: end: 19940709
  2. ROBITUSSIN CF (DEXTROMETHORPHAN [Suspect]
     Indication: NASOPHARYNGITIS
     Dosage: ORAL
     Route: 048
     Dates: end: 19940709

REACTIONS (1)
  - CEREBROVASCULAR ACCIDENT [None]
